FAERS Safety Report 19886654 (Version 1)
Quarter: 2021Q3

REPORT INFORMATION
  Report Type: Spontaneous
  Country: US (occurrence: US)
  Receive Date: 20210927
  Receipt Date: 20210927
  Transmission Date: 20211014
  Serious: No
  Sender: FDA-Public Use
  Company Number: US-PFIZER INC-2021290884

PATIENT
  Sex: Male

DRUGS (3)
  1. IBUPROFEN. [Interacting]
     Active Substance: IBUPROFEN
     Dosage: UNK
  2. VIAGRA [Suspect]
     Active Substance: SILDENAFIL CITRATE
     Dosage: UNK
  3. MOTRIN [Interacting]
     Active Substance: IBUPROFEN
     Dosage: UNK

REACTIONS (2)
  - Dysuria [Unknown]
  - Drug interaction [Unknown]
